FAERS Safety Report 24692603 (Version 1)
Quarter: 2024Q4

REPORT INFORMATION
  Report Type: Spontaneous
  Country: US (occurrence: US)
  Receive Date: 20241203
  Receipt Date: 20241203
  Transmission Date: 20250114
  Serious: Yes (Other)
  Sender: GENERICUS
  Company Number: US-GENERICUS, INC.-2024GNR00009

PATIENT
  Age: 70 Year
  Sex: Male

DRUGS (2)
  1. TOBRAMYCIN [Suspect]
     Active Substance: TOBRAMYCIN\TOBRAMYCIN SULFATE
     Indication: Arthritis bacterial
     Dosage: 3.6 G; 3 BOTTLES; POWDER
     Route: 014
  2. VANCOMYCIN [Concomitant]
     Active Substance: VANCOMYCIN
     Indication: Arthritis bacterial
     Dosage: 4 G; POWDER
     Route: 014

REACTIONS (4)
  - Nephropathy toxic [Recovered/Resolved]
  - Acute kidney injury [Recovered/Resolved]
  - Hyperkalaemia [Recovered/Resolved]
  - Oliguria [Recovered/Resolved]
